FAERS Safety Report 20070040 (Version 1)
Quarter: 2021Q4

REPORT INFORMATION
  Report Type: Spontaneous
  Country: NL (occurrence: NL)
  Receive Date: 20211115
  Receipt Date: 20211115
  Transmission Date: 20220304
  Serious: Yes (Death, Other)
  Sender: FDA-Public Use
  Company Number: NL-SHIRE-NL201806653

PATIENT

DRUGS (1)
  1. IRINOTECAN [Suspect]
     Active Substance: IRINOTECAN
     Indication: Product used for unknown indication
     Dosage: NOT REPORTED
     Route: 065

REACTIONS (10)
  - Hypokalaemia [Fatal]
  - Alopecia [Fatal]
  - Fatigue [Fatal]
  - Neutropenia [Fatal]
  - Septic shock [Fatal]
  - Diarrhoea [Fatal]
  - Anaemia [Fatal]
  - Nausea [Fatal]
  - Vomiting [Fatal]
  - Decreased appetite [Fatal]

NARRATIVE: CASE EVENT DATE: 20180101
